FAERS Safety Report 5040630-X (Version None)
Quarter: 2006Q2

REPORT INFORMATION
  Report Type: 
  Country: None (occurrence: None)
  Receive Date: 20060628
  Receipt Date: 20060614
  Transmission Date: 20061013
  Serious: No
  Sender: FDA-Public Use
  Company Number: 2006001225

PATIENT
  Age: 66 Year
  Sex: Male

DRUGS (1)
  1. TARCEVA [Suspect]
     Indication: LUNG CANCER METASTATIC
     Dosage: 150 MG (QD), ORAL
     Route: 048
     Dates: start: 20060520, end: 20060602

REACTIONS (2)
  - ASTHENIA [None]
  - WHITE BLOOD CELL COUNT DECREASED [None]
